FAERS Safety Report 9830023 (Version 1)
Quarter: 2014Q1

REPORT INFORMATION
  Report Type: Spontaneous
  Country: US (occurrence: US)
  Receive Date: 20140120
  Receipt Date: 20140120
  Transmission Date: 20141002
  Serious: No
  Sender: FDA-Public Use
  Company Number: US-009507513-1401USA004326

PATIENT
  Sex: Female

DRUGS (2)
  1. CORICIDIN HBP CHEST CONGESTION AND COUGH [Suspect]
     Indication: NASOPHARYNGITIS
     Dosage: UNK, ONCE
     Route: 048
     Dates: start: 20140101
  2. CORICIDIN HBP CHEST CONGESTION AND COUGH [Suspect]
     Indication: COUGH

REACTIONS (1)
  - Rash pruritic [Not Recovered/Not Resolved]
